FAERS Safety Report 25359352 (Version 1)
Quarter: 2025Q2

REPORT INFORMATION
  Report Type: Spontaneous
  Country: US (occurrence: US)
  Receive Date: 20250526
  Receipt Date: 20250526
  Transmission Date: 20250716
  Serious: No
  Sender: RECKITT BENCKISER
  Company Number: US-PROD-AS2-212756134-20-24-USA-RB-0002186

PATIENT
  Age: 34 Year
  Sex: Male
  Weight: 77.111 kg

DRUGS (1)
  1. MUCINEX DM MAXIMUM STRENGTH [Suspect]
     Active Substance: DEXTROMETHORPHAN HYDROBROMIDE\GUAIFENESIN
     Indication: Secretion discharge
     Route: 048
     Dates: start: 20240621, end: 20240621

REACTIONS (2)
  - Condition aggravated [Not Recovered/Not Resolved]
  - Product after taste [Unknown]

NARRATIVE: CASE EVENT DATE: 20240621
